FAERS Safety Report 9805189 (Version 2)
Quarter: 2014Q1

REPORT INFORMATION
  Report Type: Spontaneous
  Country: DE (occurrence: DE)
  Receive Date: 20140109
  Receipt Date: 20140124
  Transmission Date: 20141002
  Serious: Yes (Hospitalization)
  Sender: FDA-Public Use
  Company Number: DE-AMGEN-DEUSP2014000871

PATIENT
  Sex: 0

DRUGS (8)
  1. NEULASTA [Suspect]
     Indication: HAEMATOPOIETIC STEM CELL MOBILISATION
     Dosage: 0.6 ML, ONCE
     Route: 058
     Dates: start: 20131226, end: 20131226
  2. ADRIAMYCIN                         /00330901/ [Concomitant]
     Indication: HODGKIN^S DISEASE
     Dosage: 34.42 MG/M2, UNK
     Dates: start: 20131223, end: 20131223
  3. BLEOMYCIN [Concomitant]
     Indication: HODGKIN^S DISEASE
     Dosage: 9.86 MG/M2, UNK
     Dates: start: 20131230, end: 20131230
  4. PROCARBAZINE [Concomitant]
     Indication: HODGKIN^S DISEASE
     Dosage: 86.04 MG/M2, UNK
     Dates: start: 20131223
  5. VINCRISTINE [Concomitant]
     Indication: HODGKIN^S DISEASE
     Dosage: 1.41 MG/M2, UNK
     Dates: start: 20131230, end: 20131230
  6. ETOPOSIDE [Concomitant]
     Indication: HODGKIN^S DISEASE
     Dosage: 200.70 MG/M2, UNK
     Dates: start: 20131223, end: 20131225
  7. CYCLOPHOSPHAMIDE [Concomitant]
     Indication: HODGKIN^S DISEASE
     Dosage: 1262 MG/M2, UNK
     Dates: start: 20131223, end: 20131223
  8. PREDNISONE [Concomitant]
     Indication: HODGKIN^S DISEASE
     Dosage: 40 MG/M2, UNK
     Dates: start: 20131223, end: 20140105

REACTIONS (1)
  - Spinal pain [Recovered/Resolved]
